FAERS Safety Report 4274383-X (Version None)
Quarter: 2004Q1

REPORT INFORMATION
  Report Type: 
  Country: None (occurrence: None)
  Receive Date: 20040120
  Receipt Date: 20020221
  Transmission Date: 20041129
  Serious: Yes (Hospitalization, Other)
  Sender: FDA-Public Use
  Company Number: US-BRISTOL-MYERS SQUIBB COMPANY-11736576

PATIENT
  Age: 75 Year
  Sex: Male

DRUGS (12)
  1. ATORVASTATIN [Suspect]
     Dosage: DRUG WAS PERMANENTLY DISCONTINUED.
     Route: 048
     Dates: start: 20010611, end: 20020129
  2. GATIFLOXACIN [Suspect]
     Dosage: DRUG WAS PERMANENTLY DISCONTINUED.
     Route: 048
     Dates: start: 20010625, end: 20020129
  3. GLUCOPHAGE [Suspect]
     Route: 048
     Dates: start: 20020129, end: 20020130
  4. CARDIZEM [Suspect]
     Route: 048
     Dates: end: 20020130
  5. ZESTRIL [Suspect]
     Route: 048
     Dates: start: 20010611, end: 20020130
  6. LANOXIN [Suspect]
     Route: 048
     Dates: start: 20010801
  7. MAXZIDE [Concomitant]
     Route: 048
  8. ALLOPURINOL [Concomitant]
     Route: 048
  9. FLOVENT [Concomitant]
     Route: 050
  10. FLONASE [Concomitant]
     Route: 050
  11. ASPIRIN [Concomitant]
     Route: 048
     Dates: start: 20010611
  12. GLUCOTROL [Concomitant]
     Route: 048
     Dates: start: 20010701, end: 20020130

REACTIONS (5)
  - BRADYCARDIA [None]
  - HYPOGLYCAEMIA [None]
  - HYPOTENSION [None]
  - SYNCOPE [None]
  - VISION BLURRED [None]
